FAERS Safety Report 4498389-0 (Version None)
Quarter: 2004Q4

REPORT INFORMATION
  Report Type: 
  Country: None (occurrence: None)
  Receive Date: 20041105
  Receipt Date: 20041028
  Transmission Date: 20050328
  Serious: Yes (Other)
  Sender: FDA-Public Use
  Company Number: 2004-10-1889

PATIENT
  Age: 41 Year
  Sex: Female

DRUGS (2)
  1. PEG-INTERFERON ALFA-2B INJECTABLE [Suspect]
     Indication: HEPATITIS C
     Dosage: 80 MCG QW SUBCUTANEOUS
     Route: 058
     Dates: start: 20040817
  2. RIBAVIRIN [Suspect]
     Indication: HEPATITIS C
     Dosage: 400MG BID ORAL
     Route: 048
     Dates: start: 20040817

REACTIONS (3)
  - DIARRHOEA [None]
  - FLANK PAIN [None]
  - HAEMORRHAGE [None]
